FAERS Safety Report 16968332 (Version 3)
Quarter: 2019Q4

REPORT INFORMATION
  Report Type: Report from Study
  Country: None (occurrence: US)
  Receive Date: 20191028
  Receipt Date: 20191224
  Transmission Date: 20200122
  Serious: Yes (Hospitalization, Other)
  Sender: FDA-Public Use
  Company Number: US-ABBVIE-19K-163-2974621-00

PATIENT
  Age: 62 Year
  Sex: Female
  Weight: 68.1 kg

DRUGS (2)
  1. LOSARTAN. [Concomitant]
     Active Substance: LOSARTAN
     Indication: HYPERTENSION
  2. HUMIRA [Suspect]
     Active Substance: ADALIMUMAB
     Indication: CROHN^S DISEASE
     Route: 058
     Dates: start: 201901

REACTIONS (8)
  - Gastrooesophageal reflux disease [Recovered/Resolved]
  - Feeling abnormal [Unknown]
  - Diarrhoea [Unknown]
  - Chronic obstructive pulmonary disease [Unknown]
  - Blood triglycerides increased [Unknown]
  - Vomiting [Recovered/Resolved]
  - Vomiting [Unknown]
  - Blood cholesterol increased [Unknown]

NARRATIVE: CASE EVENT DATE: 2019
